FAERS Safety Report 25494667 (Version 1)
Quarter: 2025Q2

REPORT INFORMATION
  Report Type: Spontaneous
  Country: IT (occurrence: IT)
  Receive Date: 20250630
  Receipt Date: 20250630
  Transmission Date: 20250717
  Serious: Yes (Other)
  Sender: NOVARTIS
  Company Number: IT-002147023-NVSC2025IT102328

PATIENT
  Age: 7 Year
  Sex: Female

DRUGS (4)
  1. CYCLOSPORINE [Suspect]
     Active Substance: CYCLOSPORINE
     Indication: Generalised pustular psoriasis
     Dosage: 3.5 MG/KG, QD
     Route: 065
  2. IXEKIZUMAB [Suspect]
     Active Substance: IXEKIZUMAB
     Indication: Generalised pustular psoriasis
     Route: 065
  3. IXEKIZUMAB [Suspect]
     Active Substance: IXEKIZUMAB
     Dosage: 40 MG, Q4W
     Route: 065
  4. PREDNISONE [Suspect]
     Active Substance: PREDNISONE
     Indication: Generalised pustular psoriasis
     Dosage: 12.5 MG, QD
     Route: 065

REACTIONS (7)
  - Hyperpyrexia [Recovering/Resolving]
  - Psoriasis [Recovering/Resolving]
  - Malaise [Recovering/Resolving]
  - Pruritus [Recovering/Resolving]
  - Pain [Recovering/Resolving]
  - Impaired quality of life [Recovering/Resolving]
  - Drug ineffective [Unknown]
